FAERS Safety Report 25366534 (Version 2)
Quarter: 2025Q2

REPORT INFORMATION
  Report Type: Report from Study
  Country: US (occurrence: US)
  Receive Date: 20250528
  Receipt Date: 20250618
  Transmission Date: 20250717
  Serious: No
  Sender: ACADIA PHARMACEUTICALS
  Company Number: US-ACADIA PHARMACEUTICALS INC.-ACA-2025-PIM-006194

PATIENT
  Sex: Male

DRUGS (19)
  1. NUPLAZID [Suspect]
     Active Substance: PIMAVANSERIN TARTRATE
     Indication: Parkinson^s disease psychosis
     Dosage: 34 MILLIGRAM, QD
     Route: 048
     Dates: start: 20241217
  2. ASPIRIN [Concomitant]
     Active Substance: ASPIRIN
  3. VITAMIN B12 [Concomitant]
     Active Substance: CYANOCOBALAMIN
  4. BUPROPION [Concomitant]
     Active Substance: BUPROPION
  5. CEPHALEXIN [Concomitant]
     Active Substance: CEPHALEXIN
  6. DEXTROAMPHETAMINE [Concomitant]
     Active Substance: DEXTROAMPHETAMINE
  7. DONEPEZIL [Concomitant]
     Active Substance: DONEPEZIL
  8. DULOXETINE [Concomitant]
     Active Substance: DULOXETINE
  9. FISH OIL [Concomitant]
     Active Substance: FISH OIL
  10. HYDRALAZINE [Concomitant]
     Active Substance: HYDRALAZINE HYDROCHLORIDE
  11. MEMANTINE [Concomitant]
     Active Substance: MEMANTINE
  12. METAMUCIL THERAPY FOR REGULARITY [Concomitant]
     Active Substance: PSYLLIUM HUSK
  13. MIRABEGRON [Concomitant]
     Active Substance: MIRABEGRON
  14. VITAMINS [Concomitant]
     Active Substance: VITAMINS
  15. MYRBETRIQ [Concomitant]
     Active Substance: MIRABEGRON
  16. NEXIUM I.V. [Concomitant]
     Active Substance: ESOMEPRAZOLE SODIUM
  17. REPATHA [Concomitant]
     Active Substance: EVOLOCUMAB
  18. VITAMIN D3 [Concomitant]
     Active Substance: CHOLECALCIFEROL
  19. VITAMIN E [Concomitant]
     Active Substance: .ALPHA.-TOCOPHEROL

REACTIONS (2)
  - Fluid retention [Unknown]
  - Peripheral swelling [Unknown]
